FAERS Safety Report 25851372 (Version 1)
Quarter: 2025Q3

REPORT INFORMATION
  Report Type: Spontaneous
  Country: IN (occurrence: IN)
  Receive Date: 20250926
  Receipt Date: 20250926
  Transmission Date: 20251021
  Serious: Yes (Hospitalization, Other)
  Sender: CADILA
  Company Number: IN-CPL-005357

PATIENT
  Age: 18 Year
  Sex: Male

DRUGS (1)
  1. PREGABALIN [Suspect]
     Active Substance: PREGABALIN

REACTIONS (5)
  - Syncope [Unknown]
  - Drug abuse [Unknown]
  - Intentional overdose [Unknown]
  - Withdrawal syndrome [Unknown]
  - Drug dependence [Unknown]
